FAERS Safety Report 8612225-X (Version None)
Quarter: 2012Q3

REPORT INFORMATION
  Report Type: 
  Country: None (occurrence: None)
  Receive Date: 20120822
  Receipt Date: 20120814
  Transmission Date: 20120928
  Serious: No
  Sender: FDA-Public Use
  Company Number: US-ASTRAZENECA-2012SE48307

PATIENT
  Age: 67 Year
  Sex: Female
  Weight: 88 kg

DRUGS (2)
  1. ARIMIDEX [Suspect]
     Indication: BREAST CANCER
     Route: 048
     Dates: start: 20111114, end: 20120621
  2. ARIMIDEX [Suspect]
     Indication: ANTIOESTROGEN THERAPY
     Route: 048
     Dates: start: 20111114, end: 20120621

REACTIONS (16)
  - DIZZINESS [None]
  - MUSCULOSKELETAL STIFFNESS [None]
  - BREAST TENDERNESS [None]
  - PAIN [None]
  - DRY MOUTH [None]
  - PAIN IN EXTREMITY [None]
  - BREAST PAIN [None]
  - THROAT IRRITATION [None]
  - GAIT DISTURBANCE [None]
  - INSOMNIA [None]
  - MYALGIA [None]
  - ALOPECIA [None]
  - EPISTAXIS [None]
  - ARTHRALGIA [None]
  - HEADACHE [None]
  - FATIGUE [None]
